FAERS Safety Report 5007347-9 (Version None)
Quarter: 2006Q2

REPORT INFORMATION
  Report Type: 
  Country: None (occurrence: None)
  Receive Date: 20060519
  Receipt Date: 20060519
  Transmission Date: 20061013
  Serious: Yes (Life-Threatening)
  Sender: FDA-Public Use
  Company Number: None

PATIENT
  Age: 49 Year
  Sex: Female
  Weight: 78.0187 kg

DRUGS (1)
  1. CYMBALTA [Suspect]
     Indication: DEPRESSION
     Dosage: 1 DAILY PO
     Route: 048
     Dates: start: 20060119, end: 20060309

REACTIONS (7)
  - ACTIVITIES OF DAILY LIVING IMPAIRED [None]
  - BLOOD PRESSURE DECREASED [None]
  - CHOLESTASIS [None]
  - HEPATITIS ACUTE [None]
  - HEPATOCELLULAR DAMAGE [None]
  - IMPAIRED WORK ABILITY [None]
  - VISUAL ACUITY REDUCED [None]
